FAERS Safety Report 7962578-0 (Version None)
Quarter: 2011Q4

REPORT INFORMATION
  Report Type: 
  Country: None (occurrence: None)
  Receive Date: 20111207
  Receipt Date: 20080421
  Transmission Date: 20120403
  Serious: Yes (Hospitalization)
  Sender: FDA-Public Use
  Company Number: ES-UCBSA-046483

PATIENT
  Age: 75 Year
  Sex: Female

DRUGS (6)
  1. AZATHIOPRINE [Suspect]
     Indication: CROHN'S DISEASE
     Dosage: TOTAL DAILY DOSE: 75 MG
     Route: 048
     Dates: start: 20071213, end: 20071231
  2. OMEPRAZOLE [Suspect]
     Route: 048
     Dates: start: 20070515
  3. PLANTABEN [Suspect]
     Indication: CONSTIPATION
     Route: 048
     Dates: start: 20070928
  4. ASPIRIN [Suspect]
     Dosage: TOTAL DAILY DOSE: 100 MG
     Route: 048
     Dates: start: 20070928, end: 20071208
  5. SINTROM [Suspect]
     Route: 048
     Dates: start: 20071209
  6. VERAPAMIL [Suspect]
     Route: 048
     Dates: start: 20070515

REACTIONS (1)
  - ENCEPHALITIS HERPES [None]
